FAERS Safety Report 11113812 (Version 2)
Quarter: 2017Q1

REPORT INFORMATION
  Report Type: Spontaneous
  Country: US (occurrence: US)
  Receive Date: 20150514
  Receipt Date: 20170216
  Transmission Date: 20170428
  Serious: Yes (Other)
  Sender: FDA-Public Use
  Company Number: US-ELI_LILLY_AND_COMPANY-US201505003298

PATIENT
  Sex: Female
  Weight: 76.19 kg

DRUGS (3)
  1. CYMBALTA [Suspect]
     Active Substance: DULOXETINE HYDROCHLORIDE
     Indication: PAIN
     Dosage: 100 MG, QD
     Route: 065
  2. CYMBALTA [Suspect]
     Active Substance: DULOXETINE HYDROCHLORIDE
     Dosage: 20 MG, BID
     Route: 065
  3. CYMBALTA [Suspect]
     Active Substance: DULOXETINE HYDROCHLORIDE
     Indication: DEPRESSION
     Dosage: 120 MG, QD
     Route: 065

REACTIONS (19)
  - Hostility [Unknown]
  - Dysphoria [Unknown]
  - Dizziness [Unknown]
  - Vertigo [Unknown]
  - Nightmare [Unknown]
  - Seizure [Unknown]
  - Drug withdrawal syndrome [Unknown]
  - Nausea [Unknown]
  - Agitation [Unknown]
  - Vomiting [Unknown]
  - Irritability [Unknown]
  - Anxiety [Unknown]
  - Sleep disorder [Unknown]
  - Fatigue [Unknown]
  - Mood swings [Unknown]
  - Suicidal ideation [Unknown]
  - Paraesthesia [Unknown]
  - Diarrhoea [Unknown]
  - Headache [Unknown]
